FAERS Safety Report 12628488 (Version 1)
Quarter: 2016Q3

REPORT INFORMATION
  Report Type: Spontaneous
  Country: US (occurrence: US)
  Receive Date: 20160808
  Receipt Date: 20160808
  Transmission Date: 20161109
  Serious: No
  Sender: FDA-Public Use
  Company Number: US-JAZZ-2016-US-004214

PATIENT
  Sex: Female

DRUGS (21)
  1. XYREM [Suspect]
     Active Substance: SODIUM OXYBATE
     Indication: NARCOLEPSY
     Dosage: 2.25 G, QD
     Route: 048
     Dates: start: 201001, end: 201002
  2. SPIRONOLACTONE. [Concomitant]
     Active Substance: SPIRONOLACTONE
  3. APRI [Concomitant]
     Active Substance: DESOGESTREL\ETHINYL ESTRADIOL
  4. VITAMIN D [Concomitant]
     Active Substance: CHOLECALCIFEROL
  5. NAPROXEN. [Concomitant]
     Active Substance: NAPROXEN
  6. CLARITIN [Concomitant]
     Active Substance: LORATADINE
  7. NEXIUM [Concomitant]
     Active Substance: ESOMEPRAZOLE MAGNESIUM
  8. XYREM [Suspect]
     Active Substance: SODIUM OXYBATE
     Dosage: 4.5 G, BID
     Route: 048
     Dates: start: 201208
  9. VITAMIN E [Concomitant]
     Active Substance: .ALPHA.-TOCOPHEROL
  10. DIAZEPAM. [Concomitant]
     Active Substance: DIAZEPAM
  11. TIZANIDINE. [Concomitant]
     Active Substance: TIZANIDINE
  12. XYREM [Suspect]
     Active Substance: SODIUM OXYBATE
     Dosage: DOSE ADJUSTMENT
     Route: 048
  13. METHYLIN [Concomitant]
     Active Substance: METHYLPHENIDATE HYDROCHLORIDE
  14. INDOMETHACIN. [Concomitant]
     Active Substance: INDOMETHACIN
  15. IBUPROFEN. [Concomitant]
     Active Substance: IBUPROFEN
  16. DAYTRANA [Suspect]
     Active Substance: METHYLPHENIDATE
     Indication: PRODUCT USED FOR UNKNOWN INDICATION
  17. BIOTIN [Concomitant]
     Active Substance: BIOTIN
  18. FAMCICLOVIR. [Concomitant]
     Active Substance: FAMCICLOVIR
  19. MAXALT [Concomitant]
     Active Substance: RIZATRIPTAN BENZOATE
  20. LINZESS [Concomitant]
     Active Substance: LINACLOTIDE
  21. ACIDOPHILUS [Concomitant]
     Active Substance: LACTOBACILLUS ACIDOPHILUS

REACTIONS (4)
  - Weight decreased [Not Recovered/Not Resolved]
  - Weight increased [Unknown]
  - Migraine [Not Recovered/Not Resolved]
  - Metabolic disorder [Unknown]
